FAERS Safety Report 15985780 (Version 1)
Quarter: 2019Q1

REPORT INFORMATION
  Report Type: Spontaneous
  Country: US (occurrence: US)
  Receive Date: 20190220
  Receipt Date: 20190220
  Transmission Date: 20190418
  Serious: No
  Sender: FDA-Public Use
  Company Number: US-ACS-001312

PATIENT
  Age: 45 Year
  Sex: Female

DRUGS (1)
  1. CEFTRIAXONE FOR INJECTION 1G [Suspect]
     Active Substance: CEFTRIAXONE
     Indication: CYSTITIS
     Route: 030
     Dates: start: 20181214

REACTIONS (2)
  - Expired product administered [Recovered/Resolved]
  - Headache [Recovered/Resolved]

NARRATIVE: CASE EVENT DATE: 20181214
